FAERS Safety Report 25525921 (Version 1)
Quarter: 2025Q3

REPORT INFORMATION
  Report Type: Spontaneous
  Country: US (occurrence: US)
  Receive Date: 20250707
  Receipt Date: 20250707
  Transmission Date: 20251021
  Serious: No
  Sender: BAYER HEALTHCARE LLC
  Company Number: US-BAYER-2025A088468

PATIENT
  Sex: Female

DRUGS (8)
  1. ALEVE [Suspect]
     Active Substance: NAPROXEN SODIUM
     Indication: Fall
  2. ALEVE [Suspect]
     Active Substance: NAPROXEN SODIUM
     Indication: Joint injury
  3. ADVIL [Concomitant]
     Active Substance: IBUPROFEN
     Indication: Fall
  4. ADVIL [Concomitant]
     Active Substance: IBUPROFEN
     Indication: Joint injury
  5. ICY HOT [Concomitant]
     Active Substance: LIDOCAINE\MENTHOL
     Indication: Fall
  6. ICY HOT [Concomitant]
     Active Substance: LIDOCAINE\MENTHOL
     Indication: Joint injury
  7. DEVICE [Concomitant]
     Active Substance: DEVICE
     Indication: Fall
  8. DEVICE [Concomitant]
     Active Substance: DEVICE
     Indication: Joint injury

REACTIONS (1)
  - Drug effective for unapproved indication [Unknown]
